FAERS Safety Report 23982592 (Version 3)
Quarter: 2024Q3

REPORT INFORMATION
  Report Type: Spontaneous
  Country: US (occurrence: US)
  Receive Date: 20240617
  Receipt Date: 20240909
  Transmission Date: 20241017
  Serious: Yes (Other)
  Sender: CALLIDITAS THERAPEUTICS
  Company Number: US-Calliditas-2024CAL00963

PATIENT
  Age: 45 Year
  Sex: Female

DRUGS (2)
  1. TARPEYO [Suspect]
     Active Substance: BUDESONIDE
     Indication: Haematuria
     Route: 048
     Dates: start: 20240524
  2. DIAMOX SEQUELS [Concomitant]
     Active Substance: ACETAZOLAMIDE
     Dosage: INCREASED TO 900 MG

REACTIONS (6)
  - Dizziness [Unknown]
  - Affective disorder [Unknown]
  - Idiopathic intracranial hypertension [Unknown]
  - Condition aggravated [Unknown]
  - Back pain [Unknown]
  - Acidosis [Unknown]

NARRATIVE: CASE EVENT DATE: 20240701
